FAERS Safety Report 7452975-4 (Version None)
Quarter: 2011Q2

REPORT INFORMATION
  Report Type: 
  Country: None (occurrence: None)
  Receive Date: 20110502
  Receipt Date: 20110415
  Transmission Date: 20111010
  Serious: No
  Sender: FDA-Public Use
  Company Number: US-B.I. PHARMACEUTICALS,INC./RIDGEFIELD-2010-BP-14058BP

PATIENT
  Age: 67 Year
  Sex: Female

DRUGS (4)
  1. ZANTAC 75 [Suspect]
     Indication: HELICOBACTER INFECTION
     Route: 048
     Dates: start: 20101130
  2. VASOTEC [Concomitant]
     Indication: HYPERTENSION
     Dosage: 10 MG
     Dates: start: 20060101
  3. ZANTAC 75 [Suspect]
     Indication: GASTROOESOPHAGEAL REFLUX DISEASE
  4. XANAX [Concomitant]
     Indication: ANXIETY
     Dates: start: 20060101

REACTIONS (3)
  - MALAISE [None]
  - FEELING ABNORMAL [None]
  - PYREXIA [None]
